FAERS Safety Report 5657940-5 (Version None)
Quarter: 2008Q1

REPORT INFORMATION
  Report Type: 
  Country: None (occurrence: None)
  Receive Date: 20080305
  Receipt Date: 20080221
  Transmission Date: 20080703
  Serious: No
  Sender: FDA-Public Use
  Company Number: 8030086

PATIENT
  Age: 8 Year
  Sex: Male
  Weight: 46 kg

DRUGS (3)
  1. METHYLPHENIDATE HCL [Suspect]
     Indication: ATTENTION DEFICIT/HYPERACTIVITY DISORDER
     Dosage: 30 MG 1/D
     Dates: start: 20070116
  2. MEDIKINET [Concomitant]
  3. METHYLPHENIDATE HCL [Concomitant]

REACTIONS (3)
  - GASTROINTESTINAL PAIN [None]
  - HEADACHE [None]
  - MOROSE [None]
